FAERS Safety Report 12692740 (Version 2)
Quarter: 2017Q2

REPORT INFORMATION
  Report Type: Spontaneous
  Country: FR (occurrence: FR)
  Receive Date: 20160829
  Receipt Date: 20170425
  Transmission Date: 20170830
  Serious: Yes (Life-Threatening, Hospitalization)
  Sender: FDA-Public Use
  Company Number: FR-ACCORD-043492

PATIENT
  Age: 43 Year
  Sex: Female

DRUGS (10)
  1. CISPLATIN ACCORD [Suspect]
     Active Substance: CISPLATIN
     Indication: SQUAMOUS CELL CARCINOMA OF THE TONGUE
     Dosage: STRENGTH: 1 MG/ML???RECEIVED AS PER TPF PROTOCOL
     Route: 042
     Dates: start: 20160603
  2. FLUOROURACIL PFIZER [Suspect]
     Active Substance: FLUOROURACIL
     Indication: SQUAMOUS CELL CARCINOMA OF THE TONGUE
     Dosage: STRENGTH 50MG/ML?RECEIVED 2350 MG PER CYCLE ON 03-JUN-2016, AND 05-JUN-2016, 1175 MG ON 07-JUN-2016
     Route: 042
     Dates: start: 20160603, end: 20160607
  3. SOLUPRED [Concomitant]
     Active Substance: PREDNISOLONE
  4. TRIFLUCAN [Concomitant]
     Active Substance: FLUCONAZOLE
  5. EMEND [Concomitant]
     Active Substance: APREPITANT
  6. ZOPHREN [Concomitant]
     Active Substance: ONDANSETRON
  7. RAMIPRIL. [Concomitant]
     Active Substance: RAMIPRIL
  8. NEBIVOLOL. [Concomitant]
     Active Substance: NEBIVOLOL
  9. LYRICA [Concomitant]
     Active Substance: PREGABALIN
     Dosage: STRENGTH: 100 MG
  10. TAXOTERE [Suspect]
     Active Substance: DOCETAXEL
     Indication: SQUAMOUS CELL CARCINOMA OF THE TONGUE
     Dosage: STRENGTH: 160MG/8ML??RECEIVED AS PER TPF PROTOCOL
     Route: 042
     Dates: start: 20160603

REACTIONS (9)
  - Septic shock [Recovered/Resolved]
  - Aspergillus infection [Recovered/Resolved]
  - Renal failure [Unknown]
  - Off label use [Unknown]
  - Febrile bone marrow aplasia [Recovered/Resolved]
  - Cardiogenic shock [Recovered/Resolved]
  - Diarrhoea [Recovered/Resolved]
  - Colitis [Recovered/Resolved]
  - Cardio-respiratory arrest [Recovered/Resolved]

NARRATIVE: CASE EVENT DATE: 20160609
